FAERS Safety Report 16185134 (Version 1)
Quarter: 2019Q2

REPORT INFORMATION
  Report Type: Spontaneous
  Country: US (occurrence: US)
  Receive Date: 20190308
  Receipt Date: 20190308
  Transmission Date: 20190711
  Serious: No
  Sender: FDA-Public Use
  Company Number: None

PATIENT
  Age: 41 Year
  Sex: Female
  Weight: 183.48 kg

DRUGS (10)
  1. LISINOPRIL HCTZ [Concomitant]
     Active Substance: HYDROCHLOROTHIAZIDE\LISINOPRIL
  2. EXTRA STRENGTH ACETAMINOPHEN [Concomitant]
     Active Substance: ACETAMINOPHEN
  3. ROSUVASTATIN. [Suspect]
     Active Substance: ROSUVASTATIN
     Indication: HYPERCHOLESTEROLAEMIA
     Dosage: ?          QUANTITY:10 MG MILLIGRAM(S);?
     Route: 048
     Dates: start: 20190122, end: 20190207
  4. FREESTYLE LITE METER [Concomitant]
  5. CICLOPIROX. [Concomitant]
     Active Substance: CICLOPIROX
  6. VITAMIN D NOS [Concomitant]
     Active Substance: VITAMIN D NOS
  7. SLEEPY TIME TEA [Concomitant]
  8. DIPHENHYDRAMINE HCL [Concomitant]
     Active Substance: DIPHENHYDRAMINE HYDROCHLORIDE
  9. PRAVASTATIN. [Suspect]
     Active Substance: PRAVASTATIN
     Indication: HYPERCHOLESTEROLAEMIA
     Dosage: ?          QUANTITY:20 MG MILLIGRAM(S);?
     Route: 048
     Dates: start: 20190122, end: 20190207
  10. METFORMIN [Concomitant]
     Active Substance: METFORMIN HYDROCHLORIDE

REACTIONS (9)
  - Condition aggravated [None]
  - Flatulence [None]
  - Constipation [None]
  - Headache [None]
  - Dizziness [None]
  - Arthralgia [None]
  - Thirst [None]
  - Hunger [None]
  - Back pain [None]

NARRATIVE: CASE EVENT DATE: 20190122
